FAERS Safety Report 19073585 (Version 3)
Quarter: 2021Q2

REPORT INFORMATION
  Report Type: Spontaneous
  Country: US (occurrence: US)
  Receive Date: 20210330
  Receipt Date: 20210512
  Transmission Date: 20210717
  Serious: Yes (Other)
  Sender: FDA-Public Use
  Company Number: US-PFIZER INC-2021338398

PATIENT
  Age: 60 Year
  Sex: Female

DRUGS (1)
  1. XELJANZ XR [Suspect]
     Active Substance: TOFACITINIB CITRATE
     Indication: RHEUMATOID ARTHRITIS
     Dosage: 11 MG, DAILY
     Dates: start: 20210222, end: 20210322

REACTIONS (7)
  - Swelling face [Unknown]
  - Staphylococcal infection [Unknown]
  - Erythema [Unknown]
  - Headache [Unknown]
  - Feeling hot [Unknown]
  - Body temperature abnormal [Unknown]
  - Rash macular [Unknown]

NARRATIVE: CASE EVENT DATE: 20210227
